FAERS Safety Report 10551277 (Version 1)
Quarter: 2014Q4

REPORT INFORMATION
  Report Type: Spontaneous
  Country: TW (occurrence: None)
  Receive Date: 20141027
  Receipt Date: 20141027
  Transmission Date: 20150529
  Serious: Yes (Death, Hospitalization, Other)
  Sender: FDA-Public Use
  Company Number: 2014COV00140

PATIENT
  Age: 53 Year
  Sex: Female

DRUGS (5)
  1. SOLU-MEDROL [Suspect]
     Active Substance: METHYLPREDNISOLONE SODIUM SUCCINATE
     Indication: ANTIPHOSPHOLIPID SYNDROME
     Dosage: 1X DAY
  2. PREDONINE [Suspect]
     Active Substance: PREDNISOLONE\PREDNISOLONE ACETATE\PREDNISOLONE SODIUM SUCCINATE
     Indication: PNEUMONITIS
     Dosage: BID+HS
  3. PREDONINE [Suspect]
     Active Substance: PREDNISOLONE\PREDNISOLONE ACETATE\PREDNISOLONE SODIUM SUCCINATE
     Indication: ANTIPHOSPHOLIPID SYNDROME
     Dosage: BID+HS
  4. SOLU-MEDROL [Suspect]
     Active Substance: METHYLPREDNISOLONE SODIUM SUCCINATE
     Indication: PNEUMONITIS
     Dosage: 1X DAY
  5. PLAQUENIL [Suspect]
     Active Substance: HYDROXYCHLOROQUINE SULFATE
     Indication: ANTIPHOSPHOLIPID SYNDROME
     Dosage: 2X DAY

REACTIONS (10)
  - Bradycardia [None]
  - Acute hepatic failure [None]
  - Hepatitis B [None]
  - Antiphospholipid syndrome [None]
  - Cardiac arrest [None]
  - Pneumonitis [None]
  - General physical health deterioration [None]
  - Hepatic encephalopathy [None]
  - Sepsis [None]
  - Shock [None]
